FAERS Safety Report 9053946 (Version 1)
Quarter: 2013Q1

REPORT INFORMATION
  Report Type: Spontaneous
  Country: US (occurrence: None)
  Receive Date: 20130201
  Receipt Date: 20130201
  Transmission Date: 20140127
  Serious: Yes (Other)
  Sender: FDA-Public Use
  Company Number: None

PATIENT
  Age: 57 Year
  Sex: Male
  Weight: 83.92 kg

DRUGS (1)
  1. DESLORATADINE [Suspect]
     Indication: MULTIPLE ALLERGIES
     Route: 048
     Dates: start: 201206, end: 201212

REACTIONS (5)
  - Urticaria [None]
  - Palpitations [None]
  - Local swelling [None]
  - Ear swelling [None]
  - Dyspnoea [None]
